FAERS Safety Report 20480005 (Version 4)
Quarter: 2022Q2

REPORT INFORMATION
  Report Type: Spontaneous
  Country: BR (occurrence: BR)
  Receive Date: 20220216
  Receipt Date: 20220416
  Transmission Date: 20220720
  Serious: Yes (Hospitalization, Other)
  Sender: FDA-Public Use
  Company Number: BR-SA-2022SA046084

PATIENT
  Sex: Male
  Weight: 1.83 kg

DRUGS (1)
  1. ENOXAPARIN SODIUM [Suspect]
     Active Substance: ENOXAPARIN SODIUM
     Dosage: UNK

REACTIONS (4)
  - Premature baby [Unknown]
  - Brain hypoxia [Recovered/Resolved]
  - Heart rate decreased [Recovered/Resolved]
  - Maternal exposure during breast feeding [Unknown]
